FAERS Safety Report 17911334 (Version 1)
Quarter: 2020Q2

REPORT INFORMATION
  Report Type: Spontaneous
  Country: US (occurrence: US)
  Receive Date: 20200618
  Receipt Date: 20200618
  Transmission Date: 20200714
  Serious: Yes (Other)
  Sender: FDA-Public Use
  Company Number: US-ACTELION-A-CH2020-206051

PATIENT
  Age: 60 Year
  Sex: Female

DRUGS (9)
  1. SIMVASTATIN. [Concomitant]
     Active Substance: SIMVASTATIN
  2. WARFARIN [Concomitant]
     Active Substance: WARFARIN
  3. TADALAFIL. [Concomitant]
     Active Substance: TADALAFIL
     Route: 048
  4. TREPROSTINIL. [Concomitant]
     Active Substance: TREPROSTINIL
     Route: 055
  5. BOSENTAN. [Suspect]
     Active Substance: BOSENTAN
     Indication: PULMONARY ARTERIAL HYPERTENSION
     Route: 048
  6. SPIRONOLACTONE. [Concomitant]
     Active Substance: SPIRONOLACTONE
  7. BUMETANIDE. [Concomitant]
     Active Substance: BUMETANIDE
  8. METOPROLOL. [Concomitant]
     Active Substance: METOPROLOL
  9. CANDESARTAN. [Concomitant]
     Active Substance: CANDESARTAN

REACTIONS (2)
  - Cardiac output decreased [Unknown]
  - Cardiac resynchronisation therapy [Unknown]
